FAERS Safety Report 9679131 (Version 1)
Quarter: 2013Q4

REPORT INFORMATION
  Report Type: Spontaneous
  Country: US (occurrence: US)
  Receive Date: 20131108
  Receipt Date: 20131108
  Transmission Date: 20140711
  Serious: Yes (Other)
  Sender: FDA-Public Use
  Company Number: CHPA2013US016477

PATIENT
  Age: 73 Year
  Sex: Male

DRUGS (3)
  1. EXCEDRIN TENSION HEADACHE [Suspect]
     Indication: HEADACHE
     Dosage: UNK, UNK
     Route: 048
  2. ADVIL//IBUPROFEN [Concomitant]
     Dosage: UNK, UNK
  3. ASPIRIN [Concomitant]
     Dosage: UNK, PRN

REACTIONS (3)
  - Cholelithiasis [Unknown]
  - Headache [Unknown]
  - Neck pain [Unknown]
